FAERS Safety Report 10347028 (Version 2)
Quarter: 2014Q4

REPORT INFORMATION
  Report Type: Report from Study
  Country: US (occurrence: US)
  Receive Date: 20140729
  Receipt Date: 20141219
  Transmission Date: 20150528
  Serious: Yes (Hospitalization)
  Sender: FDA-Public Use
  Company Number: PHEH2014US014868

PATIENT
  Age: 14 Year
  Sex: Female
  Weight: 56.4 kg

DRUGS (6)
  1. LORATADIN [Concomitant]
     Active Substance: LORATADINE
     Indication: CYSTIC FIBROSIS
     Dosage: 10 MG, DAILY
     Route: 048
  2. ZANTAC [Concomitant]
     Active Substance: RANITIDINE HYDROCHLORIDE
     Indication: CYSTIC FIBROSIS
     Dosage: 150 MG, BID
     Route: 048
  3. TOBI [Suspect]
     Active Substance: TOBRAMYCIN
     Indication: CYSTIC FIBROSIS
     Dosage: 300 MG, BID (300 MG / 5 ML) (ALTERNIVE MONTHS)
     Route: 055
  4. TOBI [Suspect]
     Active Substance: TOBRAMYCIN
     Indication: PSEUDOMONAS INFECTION
  5. PULMOZYME [Concomitant]
     Active Substance: DORNASE ALFA
     Indication: CYSTIC FIBROSIS
     Dosage: 2.5 MG, DAILY
     Route: 055
  6. CREON [Concomitant]
     Active Substance: PANCRELIPASE AMYLASE\PANCRELIPASE LIPASE\PANCRELIPASE PROTEASE
     Indication: PANCREATIC INSUFFICIENCY
     Dosage: 4 DF, MEALS AND SNACKS
     Route: 048

REACTIONS (4)
  - Staphylococcal infection [Unknown]
  - Aspergillus infection [Unknown]
  - Infective pulmonary exacerbation of cystic fibrosis [Recovering/Resolving]
  - Pseudomonas infection [Unknown]

NARRATIVE: CASE EVENT DATE: 20140605
